FAERS Safety Report 4543472-4 (Version None)
Quarter: 2004Q4

REPORT INFORMATION
  Report Type: 
  Country: None (occurrence: None)
  Receive Date: 20041223
  Receipt Date: 20041118
  Transmission Date: 20050328
  Serious: No
  Sender: FDA-Public Use
  Company Number: US-JNJFOC-20041105506

PATIENT
  Age: 39 Year
  Sex: Female
  Weight: 77.1115 kg

DRUGS (2)
  1. ORTHO EVRA [Suspect]
     Indication: CONTRACEPTION
     Dosage: 1 DOSE(S), 3 IN 4 WEEK, TRANSDERMAL
     Route: 062
     Dates: start: 20040301, end: 20041101
  2. BENZA CLENZ             (ANTIBIOTICS FOR TOPICAL USE) [Concomitant]

REACTIONS (3)
  - APPLICATION SITE REACTION [None]
  - SKIN HYPERPIGMENTATION [None]
  - WEIGHT INCREASED [None]
